FAERS Safety Report 6825996-X (Version None)
Quarter: 2010Q3

REPORT INFORMATION
  Report Type: 
  Country: None (occurrence: None)
  Receive Date: 20100709
  Receipt Date: 20100625
  Transmission Date: 20110219
  Serious: Yes (Hospitalization)
  Sender: FDA-Public Use
  Company Number: IL-RANBAXY-2010RR-35425

PATIENT
  Sex: Male

DRUGS (7)
  1. OFLOXACIN [Suspect]
     Dosage: 40 MG, UNK
     Dates: start: 20100615, end: 20100617
  2. PLAVIX [Concomitant]
     Dosage: 75 MG, QD
  3. VESICARE [Concomitant]
     Dosage: 10 MG, QD
  4. ATORVASTATIN [Concomitant]
     Dosage: 10 MG, UNK
  5. LISINOPRIL [Concomitant]
     Dosage: 10 MG, BID
  6. PANTOPRAZOLE [Concomitant]
     Dosage: 40 MG, QD
  7. NAPROXEN [Concomitant]
     Dosage: 500 MG, QD

REACTIONS (1)
  - MUSCULOSKELETAL CHEST PAIN [None]
